FAERS Safety Report 19299894 (Version 5)
Quarter: 2021Q3

REPORT INFORMATION
  Report Type: Spontaneous
  Country: CA (occurrence: CA)
  Receive Date: 20210525
  Receipt Date: 20210720
  Transmission Date: 20211014
  Serious: Yes (Other)
  Sender: FDA-Public Use
  Company Number: CA-CELLTRION INC.-2020CA034970

PATIENT

DRUGS (8)
  1. INFLECTRA [Suspect]
     Active Substance: INFLIXIMAB-DYYB
     Dosage: 70MG, EVERY 4 WEEKS (SUPPOSED TO RECEIVE 730 MG)
     Route: 042
     Dates: start: 20210510, end: 20210510
  2. INFLECTRA [Suspect]
     Active Substance: INFLIXIMAB-DYYB
     Indication: COLITIS ULCERATIVE
     Dosage: 730 MG, EVERY 2,6 WEELS THEN EVERY 8 WEEKS (INDUCTION WEEK 0 ? (HOSPITAL START))
     Route: 042
     Dates: start: 20201024, end: 20201024
  3. INFLECTRA [Suspect]
     Active Substance: INFLIXIMAB-DYYB
     Dosage: 10 MG/KG (RESCUE DOSE) (NOT YET STARTED)
     Route: 042
     Dates: start: 20210115, end: 20210115
  4. INFLECTRA [Suspect]
     Active Substance: INFLIXIMAB-DYYB
     Dosage: 750MG, EVERY 4 WEEKS (SUPPOSED TO RECEIVE 730 MG)
     Route: 042
     Dates: start: 20210607
  5. INFLECTRA [Suspect]
     Active Substance: INFLIXIMAB-DYYB
     Dosage: 730MG EVERY 4 WEEKS
     Route: 042
     Dates: start: 20210412, end: 20210607
  6. INFLECTRA [Suspect]
     Active Substance: INFLIXIMAB-DYYB
     Dosage: 730 MG, EVERY 2,6 WEEKS THEN EVERY 8 WEEKS (INDUCTION WEEK 2)
     Route: 042
     Dates: start: 20201109, end: 20201109
  7. INFLECTRA [Suspect]
     Active Substance: INFLIXIMAB-DYYB
     Dosage: 730 MG, EVERY 2,6 WEELS THEN EVERY 8 WEEKS (INDUCTION WEEK 6)
     Route: 042
     Dates: start: 20201204, end: 20201204
  8. INFLECTRA [Suspect]
     Active Substance: INFLIXIMAB-DYYB
     Dosage: 750 MG EVERY 8 WEEKS
     Route: 042
     Dates: start: 20210312, end: 20210312

REACTIONS (5)
  - Condition aggravated [Not Recovered/Not Resolved]
  - Weight decreased [Unknown]
  - Weight increased [Unknown]
  - Incorrect dose administered [Unknown]
  - Off label use [Unknown]

NARRATIVE: CASE EVENT DATE: 20210312
